FAERS Safety Report 5653994-0 (Version None)
Quarter: 2008Q1

REPORT INFORMATION
  Report Type: 
  Country: None (occurrence: None)
  Receive Date: 20080306
  Receipt Date: 20080225
  Transmission Date: 20080703
  Serious: Yes (Disabling, Other)
  Sender: FDA-Public Use
  Company Number: GB-PFIZER INC-2007075139

PATIENT
  Sex: Male
  Weight: 90 kg

DRUGS (2)
  1. LIPITOR [Suspect]
     Indication: BLOOD CHOLESTEROL INCREASED
     Route: 048
  2. OMEPRAZOLE [Concomitant]
     Indication: DYSPEPSIA
     Dosage: DAILY DOSE:20MG-FREQ:DAILY
     Route: 048

REACTIONS (4)
  - AGEUSIA [None]
  - ALLERGY TO ANIMAL [None]
  - BLOOD CHOLESTEROL INCREASED [None]
  - SLEEP DISORDER [None]
